FAERS Safety Report 13513963 (Version 1)
Quarter: 2017Q2

REPORT INFORMATION
  Report Type: Spontaneous
  Country: US (occurrence: US)
  Receive Date: 20170504
  Receipt Date: 20170504
  Transmission Date: 20170830
  Serious: No
  Sender: FDA-Public Use
  Company Number: US-PFIZER INC-2017192118

PATIENT
  Sex: Female

DRUGS (1)
  1. XELJANZ [Suspect]
     Active Substance: TOFACITINIB CITRATE
     Indication: JUVENILE IDIOPATHIC ARTHRITIS
     Dosage: 5 MG, UNK

REACTIONS (13)
  - Crying [Unknown]
  - Product use in unapproved indication [Unknown]
  - Blood glucose increased [Unknown]
  - C-reactive protein increased [Unknown]
  - Red blood cell sedimentation rate increased [Unknown]
  - Arthralgia [Unknown]
  - Carbon dioxide decreased [Unknown]
  - Pain [Unknown]
  - Joint range of motion decreased [Unknown]
  - Sleep disorder [Unknown]
  - Musculoskeletal stiffness [Unknown]
  - Musculoskeletal pain [Unknown]
  - Hand deformity [Unknown]
